FAERS Safety Report 7014524-4 (Version None)
Quarter: 2010Q3

REPORT INFORMATION
  Report Type: 
  Country: None (occurrence: None)
  Receive Date: 20100924
  Receipt Date: 20100924
  Transmission Date: 20110219
  Serious: Yes (Life-Threatening, Hospitalization)
  Sender: FDA-Public Use
  Company Number: None

PATIENT
  Age: 71 Year
  Sex: Male

DRUGS (2)
  1. WARFARIN SODIUM [Suspect]
     Indication: ATRIAL FIBRILLATION
     Dosage: 5 MG EVERY DAY PO
     Route: 048
     Dates: start: 20100614, end: 20100705
  2. SERTRALINE HYDROCHLORIDE [Suspect]
     Indication: DEPRESSION
     Dosage: 100 MG EVERY DAY PO
     Route: 048
     Dates: start: 20100614

REACTIONS (3)
  - FALL [None]
  - HAEMORRHAGE INTRACRANIAL [None]
  - SUBARACHNOID HAEMORRHAGE [None]
